FAERS Safety Report 16198470 (Version 1)
Quarter: 2019Q2

REPORT INFORMATION
  Report Type: Spontaneous
  Country: FI (occurrence: FI)
  Receive Date: 20190415
  Receipt Date: 20190415
  Transmission Date: 20190711
  Serious: Yes (Other)
  Sender: FDA-Public Use
  Company Number: FI-GILEAD-2019-0401751

PATIENT
  Age: 52 Year
  Sex: Male

DRUGS (1)
  1. EPCLUSA [Suspect]
     Active Substance: SOFOSBUVIR\VELPATASVIR
     Indication: CHRONIC HEPATITIS C
     Dosage: UNK
     Route: 065
     Dates: start: 20190325

REACTIONS (3)
  - Blister [Recovered/Resolved]
  - Rash [Recovered/Resolved]
  - Lymphangitis [Recovered/Resolved]

NARRATIVE: CASE EVENT DATE: 20190403
